FAERS Safety Report 14448226 (Version 14)
Quarter: 2019Q4

REPORT INFORMATION
  Report Type: Spontaneous
  Country: US (occurrence: US)
  Receive Date: 20180126
  Receipt Date: 20191002
  Transmission Date: 20200122
  Serious: Yes (Hospitalization, Disabling)
  Sender: FDA-Public Use
  Company Number: US-ACTELION-A-NJ2017-162256

PATIENT
  Age: 31 Year
  Sex: Female

DRUGS (26)
  1. COLACE [Concomitant]
     Active Substance: DOCUSATE SODIUM
     Dosage: 50 MG, BID
     Dates: start: 20171229
  2. VELETRI [Suspect]
     Active Substance: EPOPROSTENOL
     Indication: PULMONARY ARTERIAL HYPERTENSION
     Dosage: 14 NG/KG, PER MIN
     Route: 042
     Dates: start: 20171019
  3. MIRALAX [Concomitant]
     Active Substance: POLYETHYLENE GLYCOL 3350
  4. POTASSIUM CHLORIDE. [Concomitant]
     Active Substance: POTASSIUM CHLORIDE
     Dosage: 10 MEQ, UNK
  5. DULCOLAX NOS [Concomitant]
     Active Substance: BISACODYL OR DOCUSATE SODIUM
     Dosage: 10 MG, UNK
  6. VELETRI [Suspect]
     Active Substance: EPOPROSTENOL
     Dosage: 20 NG/KG, PER MIN
     Route: 042
  7. THIAMINE. [Concomitant]
     Active Substance: THIAMINE
     Dosage: 50 MG, UNK
     Dates: start: 20171229
  8. VELETRI [Suspect]
     Active Substance: EPOPROSTENOL
     Dosage: 4 NG/KG, PER MIN
     Route: 042
     Dates: start: 20171020
  9. VELETRI [Suspect]
     Active Substance: EPOPROSTENOL
     Dosage: 10 NG/KG, PER MIN
     Route: 042
  10. LANOXIN [Concomitant]
     Active Substance: DIGOXIN
     Dosage: 0.125 MG, QD
     Dates: start: 20171229
  11. PROTONIX [Concomitant]
     Active Substance: PANTOPRAZOLE SODIUM
     Dosage: 40 MG, BID
  12. PHENERGAN [Concomitant]
     Active Substance: PROMETHAZINE HYDROCHLORIDE
     Dosage: 12.5 MG
     Dates: start: 20171229
  13. PANTOPRAZOLE [Concomitant]
     Active Substance: PANTOPRAZOLE
     Dosage: 12.5 MG, UNK
     Dates: start: 20171205
  14. PANTOPRAZOLE [Concomitant]
     Active Substance: PANTOPRAZOLE
     Dosage: 40 MG, UNK
     Dates: start: 20171229
  15. POLYETHYLENE GLYCOL [Concomitant]
     Active Substance: POLYETHYLENE GLYCOLS
     Dosage: 40 MG, UNK
     Dates: start: 20171205
  16. ADEMPAS [Concomitant]
     Active Substance: RIOCIGUAT
     Dosage: 0.5 MG, TID
     Dates: start: 201710, end: 201801
  17. SENOKOT [Concomitant]
     Active Substance: SENNOSIDES
     Dosage: 8.6 MG, QD
     Dates: start: 20171229
  18. POLYETHYLENE GLYCOL [Concomitant]
     Active Substance: POLYETHYLENE GLYCOLS
     Dosage: 17 G, UNK
     Dates: start: 20171229
  19. DIFLUCAN [Concomitant]
     Active Substance: FLUCONAZOLE
     Dosage: 200 MG, QD
  20. REGLAN [Concomitant]
     Active Substance: METOCLOPRAMIDE HYDROCHLORIDE
     Dosage: 10 MG, TID
     Dates: start: 20171229
  21. PRED FORTE [Concomitant]
     Active Substance: PREDNISOLONE ACETATE
     Dosage: 1% OPHTHALMIC SUSPENSION
     Route: 047
     Dates: start: 20171229
  22. OPSUMIT [Suspect]
     Active Substance: MACITENTAN
     Indication: PULMONARY ARTERIAL HYPERTENSION
     Dosage: 10 MG, QD
     Route: 048
     Dates: start: 20171010
  23. FLAGYL [Concomitant]
     Active Substance: METRONIDAZOLE\METRONIDAZOLE HYDROCHLORIDE
     Dosage: 500 MG, TID
  24. PHENERGAN [Concomitant]
     Active Substance: PROMETHAZINE HYDROCHLORIDE
     Dosage: 12.5 MG, Q8HRS.
  25. ADEMPAS [Concomitant]
     Active Substance: RIOCIGUAT
     Dosage: 2.5 MG, TID
     Route: 065
  26. METRONIDAZOLE. [Concomitant]
     Active Substance: METRONIDAZOLE

REACTIONS (37)
  - Dehydration [Unknown]
  - Colitis [Recovering/Resolving]
  - Abdominal pain upper [Unknown]
  - Diarrhoea [Unknown]
  - Weight decreased [Recovered/Resolved]
  - Tearfulness [Unknown]
  - Alanine aminotransferase increased [Unknown]
  - Catheter management [Recovered/Resolved]
  - Vomiting [Unknown]
  - HIV-associated neurocognitive disorder [Not Recovered/Not Resolved]
  - Malnutrition [Unknown]
  - Clostridium difficile infection [Recovering/Resolving]
  - Blood potassium decreased [Unknown]
  - Condition aggravated [Unknown]
  - Malaise [Unknown]
  - Decreased appetite [Recovered/Resolved]
  - Pain in jaw [Unknown]
  - Tachycardia [Unknown]
  - Dyspepsia [Recovered/Resolved]
  - Liver function test increased [Unknown]
  - Hypotension [Not Recovered/Not Resolved]
  - Thrombosis in device [Recovered/Resolved]
  - Nausea [Recovered/Resolved]
  - Amnesia [Not Recovered/Not Resolved]
  - Dysphonia [Not Recovered/Not Resolved]
  - Aphonia [Not Recovered/Not Resolved]
  - Drug dose omission by device [Unknown]
  - Gastric disorder [Unknown]
  - Culture stool positive [Unknown]
  - Asthenia [Recovering/Resolving]
  - Vocal cord paralysis [Not Recovered/Not Resolved]
  - Abdominal pain [Recovered/Resolved]
  - Device issue [Recovered/Resolved]
  - Device dislocation [Not Recovered/Not Resolved]
  - Blood phosphorus decreased [Unknown]
  - Aspartate aminotransferase increased [Unknown]
  - Memory impairment [Not Recovered/Not Resolved]

NARRATIVE: CASE EVENT DATE: 201710
